FAERS Safety Report 8518638 (Version 2)
Quarter: 2015Q2

REPORT INFORMATION
  Report Type: Spontaneous
  Country: US (occurrence: US)
  Receive Date: 20120417
  Receipt Date: 20150618
  Transmission Date: 20150821
  Serious: No
  Sender: FDA-Public Use
  Company Number: US-ASTRAZENECA-2012SE04929

PATIENT
  Age: 53 Year
  Sex: Female

DRUGS (14)
  1. SUMATRIPTAN. [Concomitant]
     Active Substance: SUMATRIPTAN
  2. ZANAFLEX [Concomitant]
     Active Substance: TIZANIDINE HYDROCHLORIDE
  3. ZOLPIDEM [Concomitant]
     Active Substance: ZOLPIDEM\ZOLPIDEM TARTRATE
  4. NEXIUM [Suspect]
     Active Substance: ESOMEPRAZOLE MAGNESIUM
     Route: 048
  5. ATELVIA [Concomitant]
     Active Substance: RISEDRONATE SODIUM
  6. CRESTOR [Suspect]
     Active Substance: ROSUVASTATIN CALCIUM
     Route: 048
  7. DEXILANT [Concomitant]
     Active Substance: DEXLANSOPRAZOLE
  8. VITAMIN D3 [Concomitant]
     Active Substance: CHOLECALCIFEROL
  9. ZOMIG [Suspect]
     Active Substance: ZOLMITRIPTAN
     Route: 048
  10. SINGULAIR [Concomitant]
     Active Substance: MONTELUKAST SODIUM
  11. ZOMIG [Suspect]
     Active Substance: ZOLMITRIPTAN
     Route: 045
  12. LISINOPRIL. [Concomitant]
     Active Substance: LISINOPRIL
  13. ATENOLOL. [Concomitant]
     Active Substance: ATENOLOL
  14. SAVELLA [Concomitant]
     Active Substance: MILNACIPRAN HYDROCHLORIDE

REACTIONS (7)
  - Feeling abnormal [Unknown]
  - Drug dose omission [Unknown]
  - Migraine [Unknown]
  - Gastrooesophageal reflux disease [Unknown]
  - Urticaria [Unknown]
  - Underdose [Unknown]
  - Vomiting [Unknown]
